FAERS Safety Report 4728625-4 (Version None)
Quarter: 2005Q3

REPORT INFORMATION
  Report Type: 
  Country: None (occurrence: None)
  Receive Date: 20050729
  Receipt Date: 20050718
  Transmission Date: 20060218
  Serious: Yes (Death)
  Sender: FDA-Public Use
  Company Number: 200511997EU

PATIENT
  Sex: Male

DRUGS (11)
  1. FUROSEMIDE [Suspect]
  2. PREDNISOLONE [Suspect]
  3. SPIRIVA [Suspect]
     Route: 055
  4. COMBIVENT [Suspect]
     Route: 055
  5. SERETIDE [Suspect]
     Dosage: DOSE: 1 DOSE
     Route: 055
  6. SODIUM CHLORIDE [Suspect]
  7. AMLODIPINE [Suspect]
  8. CIPROFLOXACIN [Suspect]
  9. TRIMETHOPRIM [Suspect]
  10. INSTILLAGEL [Suspect]
  11. CLOTRIMAZOLE [Suspect]

REACTIONS (2)
  - CARDIAC FAILURE CONGESTIVE [None]
  - CHRONIC OBSTRUCTIVE PULMONARY DISEASE [None]
